FAERS Safety Report 8051180-0 (Version None)
Quarter: 2012Q1

REPORT INFORMATION
  Report Type: 
  Country: None (occurrence: None)
  Receive Date: 20120117
  Receipt Date: 20120113
  Transmission Date: 20120608
  Serious: Yes (Hospitalization, Disabling, Other)
  Sender: FDA-Public Use
  Company Number: PHHO2009US08216

PATIENT
  Sex: Male
  Weight: 85 kg

DRUGS (7)
  1. MULTI-VITAMIN [Concomitant]
  2. LUNESTA [Concomitant]
     Indication: INSOMNIA
  3. FISH OIL [Concomitant]
  4. VALIUM [Concomitant]
     Indication: ANXIETY
  5. GILENYA [Suspect]
     Indication: MULTIPLE SCLEROSIS
     Dosage: 1.25 MG, QD
     Route: 048
     Dates: start: 20080916, end: 20090625
  6. PEPCID AC [Concomitant]
     Indication: PEPTIC ULCER
  7. ACETAMINOPHEN [Concomitant]
     Indication: NASOPHARYNGITIS

REACTIONS (3)
  - EPENDYMOMA [None]
  - CYST [None]
  - APHASIA [None]
